FAERS Safety Report 9387761 (Version 1)
Quarter: 2013Q3

REPORT INFORMATION
  Report Type: Spontaneous
  Country: FR (occurrence: None)
  Receive Date: 20130703
  Receipt Date: 20130703
  Transmission Date: 20140515
  Serious: Yes (Hospitalization)
  Sender: FDA-Public Use
  Company Number: SYM-2013-05288

PATIENT
  Age: 37 Year
  Sex: Female

DRUGS (14)
  1. MESTINON [Suspect]
     Indication: PRODUCT USED FOR UNKNOWN INDICATION
     Route: 048
     Dates: start: 2008
  2. XELODA [Suspect]
     Indication: PRODUCT USED FOR UNKNOWN INDICATION
     Route: 048
     Dates: start: 201201, end: 20120306
  3. ROCEPHINE [Suspect]
     Route: 030
     Dates: start: 20130118, end: 20130126
  4. PREDNISONE [Suspect]
     Indication: PRODUCT USED FOR UNKNOWN INDICATION
     Route: 048
     Dates: start: 2008
  5. LOVENOX [Suspect]
     Indication: PRODUCT USED FOR UNKNOWN INDICATION
     Route: 058
     Dates: start: 2010
  6. IBUPROFEN [Suspect]
     Indication: LUNG INFECTION
     Route: 048
     Dates: start: 20130118, end: 20130126
  7. BUDESONIDE [Concomitant]
  8. MYCOMIST [Concomitant]
  9. IMUREL [Concomitant]
  10. CISPLATIN [Concomitant]
  11. CYCLOPHOSPHAMIDE [Concomitant]
  12. ADRIAMYCIN [Concomitant]
  13. CAPECITABINE [Concomitant]
  14. GEMCITABINE? [Concomitant]

REACTIONS (16)
  - Rash [None]
  - Eosinophilia [None]
  - Influenza like illness [None]
  - Toxic skin eruption [None]
  - Cough [None]
  - Dyspnoea exertional [None]
  - Ageusia [None]
  - Anosmia [None]
  - Weight decreased [None]
  - Deep vein thrombosis [None]
  - Jugular vein thrombosis [None]
  - Medical device complication [None]
  - Muscular weakness [None]
  - Pleural disorder [None]
  - Pericardial disease [None]
  - Disease recurrence [None]
